APPROVED DRUG PRODUCT: BACTERIOSTATIC WATER FOR INJECTION IN PLASTIC CONTAINER
Active Ingredient: STERILE WATER FOR INJECTION
Strength: 100%
Dosage Form/Route: LIQUID;N/A
Application: N018802 | Product #001 | TE Code: AP
Applicant: HOSPIRA INC
Approved: Oct 27, 1982 | RLD: Yes | RS: Yes | Type: RX